FAERS Safety Report 8931372 (Version 2)
Quarter: 2013Q1

REPORT INFORMATION
  Report Type: Spontaneous
  Country: US (occurrence: US)
  Receive Date: 20121128
  Receipt Date: 20130109
  Transmission Date: 20140127
  Serious: Yes (Disabling)
  Sender: FDA-Public Use
  Company Number: US-PFIZER INC-2012297650

PATIENT
  Age: 32 Year
  Sex: Female
  Weight: 159 kg

DRUGS (4)
  1. LYRICA [Suspect]
     Indication: MIGRAINE
     Dosage: UNK
     Route: 048
  2. LYRICA [Suspect]
     Indication: PAIN IN EXTREMITY
     Dosage: 300 MG, 2X/DAY
     Route: 048
     Dates: start: 201008
  3. ATIVAN [Suspect]
     Dosage: UNK
  4. OXYCODONE HYDROCHLORIDE [Suspect]
     Indication: PAIN
     Dosage: 10 MG, EVERY SIX HOURS

REACTIONS (4)
  - Wheelchair user [Not Recovered/Not Resolved]
  - Somnolence [Unknown]
  - Drug ineffective [Recovered/Resolved]
  - Off label use [Unknown]
